FAERS Safety Report 17840229 (Version 3)
Quarter: 2020Q3

REPORT INFORMATION
  Report Type: Spontaneous
  Country: US (occurrence: US)
  Receive Date: 20200529
  Receipt Date: 20200722
  Transmission Date: 20201103
  Serious: No
  Sender: FDA-Public Use
  Company Number: NVSC2020US148272

PATIENT
  Sex: Female

DRUGS (1)
  1. COSENTYX [Suspect]
     Active Substance: SECUKINUMAB
     Indication: PRODUCT USED FOR UNKNOWN INDICATION
     Dosage: UNK
     Route: 065
     Dates: start: 201912

REACTIONS (7)
  - Illness [Unknown]
  - Product quality issue [Unknown]
  - Incorrect dose administered [Unknown]
  - Pain in extremity [Unknown]
  - Diarrhoea [Unknown]
  - Syringe issue [Unknown]
  - Abdominal discomfort [Unknown]
